FAERS Safety Report 6441512-9 (Version None)
Quarter: 2009Q4

REPORT INFORMATION
  Report Type: 
  Country: None (occurrence: None)
  Receive Date: 20091116
  Receipt Date: 20091109
  Transmission Date: 20100525
  Serious: Yes (Other)
  Sender: FDA-Public Use
  Company Number: B0603976A

PATIENT
  Age: 10 Year
  Sex: Male

DRUGS (1)
  1. RELENZA [Suspect]
     Route: 055
     Dates: start: 20091106

REACTIONS (8)
  - ANGER [None]
  - BODY TEMPERATURE DECREASED [None]
  - DELIRIUM [None]
  - FEELING ABNORMAL [None]
  - IRRITABILITY [None]
  - MOANING [None]
  - SOMNOLENCE [None]
  - SPEECH DISORDER [None]
